FAERS Safety Report 21749063 (Version 1)
Quarter: 2022Q4

REPORT INFORMATION
  Report Type: Spontaneous
  Country: EC (occurrence: EC)
  Receive Date: 20221219
  Receipt Date: 20221219
  Transmission Date: 20230113
  Serious: Yes (Hospitalization)
  Sender: FDA-Public Use
  Company Number: EC-009507513-2211ECU002026

PATIENT
  Age: 59 Year
  Sex: Male

DRUGS (3)
  1. KEYTRUDA [Suspect]
     Active Substance: PEMBROLIZUMAB
     Indication: Malignant melanoma
     Dosage: UNK ( 3RD CYCLE)
  2. KEYTRUDA [Suspect]
     Active Substance: PEMBROLIZUMAB
     Dosage: UNK (4TH CYCLE)
     Dates: start: 20221030
  3. METFORMIN [Concomitant]
     Active Substance: METFORMIN HYDROCHLORIDE
     Indication: Diabetes mellitus

REACTIONS (6)
  - Tachycardia [Unknown]
  - Nausea [Unknown]
  - Tachycardia [Unknown]
  - Nausea [Unknown]
  - Feeding intolerance [Unknown]
  - Palliative care [Unknown]

NARRATIVE: CASE EVENT DATE: 20221031
